FAERS Safety Report 7946655-6 (Version None)
Quarter: 2011Q4

REPORT INFORMATION
  Report Type: 
  Country: None (occurrence: None)
  Receive Date: 20111125
  Receipt Date: 20111115
  Transmission Date: 20120403
  Serious: Yes (Other)
  Sender: FDA-Public Use
  Company Number: 2011MA016709

PATIENT
  Age: 55 Year
  Sex: Female

DRUGS (6)
  1. METFORMIN HCL [Suspect]
     Indication: DIABETES MELLITUS
     Dosage: 500 MG; PO
     Route: 048
     Dates: start: 20110808, end: 20110818
  2. ATORVASTATIN [Concomitant]
  3. PHENOBARBITAL TAB [Concomitant]
  4. ACETYLSALICYLIC ACID SRT [Concomitant]
  5. TEGRETOL [Concomitant]
  6. LAMOTRIGINE [Concomitant]

REACTIONS (2)
  - CONDITION AGGRAVATED [None]
  - PARTIAL SEIZURES [None]
